FAERS Safety Report 8851240 (Version 1)
Quarter: 2012Q4

REPORT INFORMATION
  Report Type: 
  Country: US (occurrence: US)
  Receive Date: 20121019
  Receipt Date: 20121019
  Transmission Date: 20130627
  Serious: Yes (Other)
  Sender: FDA-Public Use
  Company Number: US-FRI-1000039483

PATIENT
  Age: 64 Year
  Sex: Female

DRUGS (3)
  1. BYSTOLIC [Suspect]
     Indication: AORTIC ANEURYSM
     Dosage: 5 mg
     Route: 048
     Dates: start: 2010, end: 20121008
  2. VITAMIN D3 [Concomitant]
     Dosage: 5000 mg
     Route: 048
  3. ASPIRIN [Concomitant]
     Dosage: 81 mg
     Route: 048

REACTIONS (5)
  - Blood pressure increased [Recovered/Resolved]
  - Weight increased [Not Recovered/Not Resolved]
  - Fatigue [Recovering/Resolving]
  - Hypoaesthesia [Not Recovered/Not Resolved]
  - Off label use [Recovered/Resolved]
